FAERS Safety Report 11120762 (Version 1)
Quarter: 2015Q2

REPORT INFORMATION
  Report Type: Spontaneous
  Country: US (occurrence: US)
  Receive Date: 20150519
  Receipt Date: 20150519
  Transmission Date: 20150821
  Serious: No
  Sender: FDA-Public Use
  Company Number: US-BAYER-2015-232337

PATIENT
  Age: 40 Year
  Sex: Male

DRUGS (1)
  1. LOTRIMIN ULTRA ANTIFUNGAL [Suspect]
     Active Substance: BUTENAFINE HYDROCHLORIDE
     Indication: PAIN IN EXTREMITY
     Dosage: 1 DOSE, TID DAILY
     Route: 061
     Dates: start: 20150508, end: 20150511

REACTIONS (2)
  - Incorrect dose administered [Unknown]
  - Product use issue [Unknown]
